FAERS Safety Report 15397040 (Version 3)
Quarter: 2018Q3

REPORT INFORMATION
  Report Type: Report from Study
  Country: US (occurrence: US)
  Receive Date: 20180918
  Receipt Date: 20180927
  Transmission Date: 20181010
  Serious: No
  Sender: FDA-Public Use
  Company Number: US-SA-2018SA260380

PATIENT
  Age: 65 Year
  Sex: Male

DRUGS (4)
  1. ALIROCUMAB PREFILLED PEN [Suspect]
     Active Substance: ALIROCUMAB
     Indication: BLOOD CHOLESTEROL
     Dosage: 75 MG, 1X
     Dates: start: 20180824, end: 20180824
  2. ALIROCUMAB [Suspect]
     Active Substance: ALIROCUMAB
     Indication: BLOOD CHOLESTEROL
     Dosage: 75 MG, 1X
     Route: 058
     Dates: start: 20180824, end: 20180824
  3. ALIROCUMAB PREFILLED PEN [Suspect]
     Active Substance: ALIROCUMAB
     Dosage: UNK
     Route: 058
     Dates: start: 2018
  4. ALIROCUMAB [Suspect]
     Active Substance: ALIROCUMAB
     Dosage: UNK, QOW
     Route: 058
     Dates: start: 2018

REACTIONS (6)
  - Injection site erythema [Recovering/Resolving]
  - Hypersensitivity [Unknown]
  - Influenza like illness [Unknown]
  - Renal pain [Recovering/Resolving]
  - Renal disorder [Unknown]
  - Insomnia [Unknown]

NARRATIVE: CASE EVENT DATE: 20180825
